FAERS Safety Report 10080901 (Version 1)
Quarter: 2014Q2

REPORT INFORMATION
  Report Type: Spontaneous
  Country: BR (occurrence: BR)
  Receive Date: 20140416
  Receipt Date: 20140416
  Transmission Date: 20141212
  Serious: Yes (Other)
  Sender: FDA-Public Use
  Company Number: CHNY2014BR001059

PATIENT
  Age: 50 Year
  Sex: Female
  Weight: 58 kg

DRUGS (8)
  1. CATAFLAM [Suspect]
     Indication: MYALGIA
     Dosage: UNK, QHS PRN
     Route: 061
     Dates: start: 2000
  2. CATAFLAM [Suspect]
     Indication: BACK PAIN
  3. CATAFLAM [Suspect]
     Indication: ARTHRALGIA
  4. CATAFLAM [Suspect]
     Indication: MUSCULAR WEAKNESS
  5. CATAFLAM [Suspect]
     Indication: PAIN IN EXTREMITY
  6. CATAFLAM [Suspect]
     Indication: OFF LABEL USE
  7. THYROXINE [Concomitant]
     Indication: THYROID HORMONE REPLACEMENT THERAPY
     Dosage: 100 MG, QD
     Route: 048
  8. PROMETHAZINE [Concomitant]
     Indication: INSOMNIA
     Dosage: 2 DF, QD
     Route: 048
     Dates: start: 2013

REACTIONS (4)
  - Back pain [Not Recovered/Not Resolved]
  - Pain in extremity [Recovered/Resolved]
  - Arthralgia [Recovered/Resolved]
  - Muscular weakness [Recovered/Resolved]
